FAERS Safety Report 8271642-0 (Version None)
Quarter: 2012Q2

REPORT INFORMATION
  Report Type: 
  Country: None (occurrence: None)
  Receive Date: 20120410
  Receipt Date: 20120216
  Transmission Date: 20120825
  Serious: Yes (Hospitalization)
  Sender: FDA-Public Use
  Company Number: LV-GLAXOSMITHKLINE-B0782859A

PATIENT
  Age: 17 Year
  Sex: Female
  Weight: 54 kg

DRUGS (3)
  1. LAMICTAL [Suspect]
     Indication: EPILEPSY
     Dosage: 50MG PER DAY
     Route: 048
     Dates: start: 20111221, end: 20120206
  2. MAGNE B6 [Concomitant]
     Indication: EPILEPSY
     Route: 048
     Dates: start: 20111221, end: 20120206
  3. ACTOVEGIN [Concomitant]
     Indication: EPILEPSY
     Dosage: 200MG THREE TIMES PER DAY
     Route: 048
     Dates: start: 20111221, end: 20120206

REACTIONS (6)
  - VOMITING [None]
  - LIP OEDEMA [None]
  - PYREXIA [None]
  - ERYTHEMA MULTIFORME [None]
  - RASH [None]
  - RESPIRATORY DISORDER [None]
